FAERS Safety Report 24282565 (Version 1)
Quarter: 2024Q3

REPORT INFORMATION
  Report Type: Report from Study
  Country: ZA (occurrence: None)
  Receive Date: 20240904
  Receipt Date: 20240904
  Transmission Date: 20241017
  Serious: Yes (Hospitalization)
  Sender: ASTRAZENECA
  Company Number: 2024A195494

PATIENT
  Age: 55 Year
  Sex: Female

DRUGS (9)
  1. BUDESONIDE\FORMOTEROL [Suspect]
     Active Substance: BUDESONIDE\FORMOTEROL
     Indication: Asthma
     Dosage: 4.5 MG, UNKNOWN UNKNOWN
     Route: 055
  2. SYNALEVE [Concomitant]
     Indication: Pain
     Route: 048
  3. CORICIB 120 MG [Concomitant]
     Route: 048
  4. SYNALEVE [Concomitant]
     Indication: Pain
     Route: 048
  5. YELATE 30 MG [Concomitant]
     Indication: Depression
     Route: 048
  6. RIDAQ 12.5 MG [Concomitant]
     Indication: Hypertension
     Route: 048
  7. MYPROCAM 15 MG [Concomitant]
     Route: 048
  8. ADCO-MIRTERON 15 MG [Concomitant]
     Indication: Depression
     Route: 048
  9. NURIKA 150 MG [Concomitant]
     Indication: Epilepsy
     Route: 048

REACTIONS (5)
  - Hypertension [Unknown]
  - Pain in extremity [Unknown]
  - Peripheral swelling [Unknown]
  - Renal disorder [Unknown]
  - Illness [Unknown]
